FAERS Safety Report 23917726 (Version 1)
Quarter: 2024Q2

REPORT INFORMATION
  Report Type: Spontaneous
  Country: US (occurrence: US)
  Receive Date: 20240530
  Receipt Date: 20240530
  Transmission Date: 20240715
  Serious: Yes (Hospitalization)
  Sender: FDA-Public Use
  Company Number: US-BRISTOL-MYERS SQUIBB COMPANY-2024-085750

PATIENT
  Age: 84 Year
  Sex: Female
  Weight: 63.5 kg

DRUGS (2)
  1. LENALIDOMIDE [Suspect]
     Active Substance: LENALIDOMIDE
     Indication: Plasma cell myeloma
     Route: 048
     Dates: start: 20240415
  2. LENALIDOMIDE [Suspect]
     Active Substance: LENALIDOMIDE

REACTIONS (4)
  - Dehydration [Recovered/Resolved]
  - Oral candidiasis [Recovered/Resolved]
  - Feeding disorder [Unknown]
  - Weight decreased [Unknown]
